FAERS Safety Report 5532008-7 (Version None)
Quarter: 2007Q4

REPORT INFORMATION
  Report Type: 
  Country: None (occurrence: None)
  Receive Date: 20071120
  Receipt Date: 20070718
  Transmission Date: 20080405
  Serious: No
  Sender: FDA-Public Use
  Company Number: WAES 0707USA03084

PATIENT
  Age: 67 Year
  Sex: Female
  Weight: 106.1417 kg

DRUGS (13)
  1. JANUVIA [Suspect]
     Indication: TYPE 2 DIABETES MELLITUS
     Dosage: 100 MG/DAILY/PO ; 100 MG/DAILY/PO
     Route: 048
     Dates: start: 20061201
  2. JANUVIA [Suspect]
     Indication: TYPE 2 DIABETES MELLITUS
     Dosage: 100 MG/DAILY/PO ; 100 MG/DAILY/PO
     Route: 048
     Dates: start: 20070315
  3. ACTONEL [Concomitant]
  4. ALDACTAZIDE [Concomitant]
  5. AVALIDE [Concomitant]
  6. CRESTOR [Concomitant]
  7. DARVOCET [Concomitant]
  8. ECOTRIN [Concomitant]
  9. HUMALOG [Concomitant]
  10. NORVASC [Concomitant]
  11. PREVACID [Concomitant]
  12. PROZAC [Concomitant]
  13. REQUIP [Concomitant]

REACTIONS (2)
  - NAUSEA [None]
  - VOMITING [None]
